FAERS Safety Report 25863275 (Version 1)
Quarter: 2025Q3

REPORT INFORMATION
  Report Type: Report from Study
  Country: CN (occurrence: CN)
  Receive Date: 20250930
  Receipt Date: 20250930
  Transmission Date: 20251020
  Serious: Yes (Other)
  Sender: ABBVIE
  Company Number: CN-ABBVIE-6478804

PATIENT

DRUGS (2)
  1. BOTOX [Suspect]
     Active Substance: ONABOTULINUMTOXINA
     Indication: Prophylaxis
     Route: 065
  2. BOTOX [Suspect]
     Active Substance: ONABOTULINUMTOXINA
     Indication: Prophylaxis
     Route: 065

REACTIONS (5)
  - Botulism [Unknown]
  - Respiratory disorder [Unknown]
  - Cardiac disorder [Unknown]
  - Cachexia [Unknown]
  - Dysphagia [Unknown]
